FAERS Safety Report 14226819 (Version 1)
Quarter: 2017Q4

REPORT INFORMATION
  Report Type: Spontaneous
  Country: US (occurrence: US)
  Receive Date: 20171127
  Receipt Date: 20171127
  Transmission Date: 20180321
  Serious: No
  Sender: FDA-Public Use
  Company Number: US-GLAXOSMITHKLINE-US2017179708

PATIENT
  Age: 86 Year
  Sex: Female

DRUGS (1)
  1. VOLTAREN [Suspect]
     Active Substance: DICLOFENAC SODIUM
     Indication: SCIATICA
     Dosage: UNK
     Dates: start: 20171119

REACTIONS (8)
  - Drug ineffective for unapproved indication [Unknown]
  - Pyrexia [Unknown]
  - Influenza [Unknown]
  - Feeling jittery [Unknown]
  - Pain [Unknown]
  - Prescription drug used without a prescription [Unknown]
  - Fatigue [Unknown]
  - Product use in unapproved indication [Unknown]

NARRATIVE: CASE EVENT DATE: 20171119
